FAERS Safety Report 9451621 (Version 1)
Quarter: 2013Q3

REPORT INFORMATION
  Report Type: Spontaneous
  Country: FR (occurrence: FR)
  Receive Date: 20130811
  Receipt Date: 20130811
  Transmission Date: 20140515
  Serious: Yes (Death)
  Sender: FDA-Public Use
  Company Number: FR-CUBIST PHARMACEUTICAL, INC.-2013CBST000504

PATIENT
  Sex: 0

DRUGS (5)
  1. CUBICIN [Suspect]
     Indication: BACTERAEMIA
     Dosage: 400 MG, ONCE DAILY
     Route: 042
     Dates: start: 20111122, end: 20111126
  2. CUBICIN [Suspect]
     Dosage: 6.45 MG, ONCE DAILY
     Route: 042
     Dates: start: 20111122, end: 20111126
  3. TAZOCILLINE [Suspect]
     Indication: BACTERAEMIA
     Dosage: 4 G, BID
     Route: 042
     Dates: start: 20111114, end: 20111126
  4. LINEZOLID [Concomitant]
     Indication: PRODUCT USED FOR UNKNOWN INDICATION
     Dosage: UNK UNK, UNK
     Route: 065
  5. AZTREONAM [Concomitant]
     Indication: PRODUCT USED FOR UNKNOWN INDICATION
     Dosage: UNK UNK, UNK
     Route: 065

REACTIONS (2)
  - Immune thrombocytopenic purpura [Fatal]
  - Cerebral haemorrhage [Fatal]
